FAERS Safety Report 12358862 (Version 1)
Quarter: 2016Q2

REPORT INFORMATION
  Report Type: Spontaneous
  Country: US (occurrence: None)
  Receive Date: 20160511
  Receipt Date: 20160511
  Transmission Date: 20160815
  Serious: Yes (Hospitalization, Disabling)
  Sender: FDA-Public Use
  Company Number: None

PATIENT
  Age: 33 Year
  Sex: Female
  Weight: 49.9 kg

DRUGS (5)
  1. MULTI VITAMIN [Concomitant]
     Active Substance: VITAMINS
  2. OMEGA 3 [Concomitant]
     Active Substance: OMEGA-3 FATTY ACIDS
  3. LEXAPRO [Suspect]
     Active Substance: ESCITALOPRAM OXALATE
     Indication: BURNING SENSATION
     Route: 048
     Dates: start: 20070801, end: 20110822
  4. VITAMIN C [Concomitant]
     Active Substance: ASCORBIC ACID
  5. VITAMIN E [Concomitant]
     Active Substance: .ALPHA.-TOCOPHEROL

REACTIONS (9)
  - Paraesthesia [None]
  - Discomfort [None]
  - Burning sensation [None]
  - Pain [None]
  - Headache [None]
  - Head discomfort [None]
  - Heart rate increased [None]
  - Impaired work ability [None]
  - Dizziness [None]

NARRATIVE: CASE EVENT DATE: 20110829
